FAERS Safety Report 12968065 (Version 1)
Quarter: 2016Q4

REPORT INFORMATION
  Report Type: Spontaneous
  Country: US (occurrence: US)
  Receive Date: 20161122
  Receipt Date: 20161122
  Transmission Date: 20170207
  Serious: Yes (Other)
  Sender: FDA-Public Use
  Company Number: None

PATIENT
  Age: 48 Year
  Sex: Female
  Weight: 67.5 kg

DRUGS (9)
  1. LAMOTRIGINE. [Suspect]
     Active Substance: LAMOTRIGINE
     Indication: AFFECTIVE DISORDER
     Dosage: ?          QUANTITY:2 TABLET(S);?
     Route: 048
  2. DAILY VITAMIN [Concomitant]
     Active Substance: VITAMINS
  3. C-PAP [Concomitant]
  4. FLONASE [Concomitant]
     Active Substance: FLUTICASONE PROPIONATE
  5. IRON [Concomitant]
     Active Substance: IRON
  6. VITAMIN B12 [Concomitant]
     Active Substance: CYANOCOBALAMIN
  7. D [Concomitant]
  8. NATURATHYROID [Concomitant]
  9. ZYRTEC [Concomitant]
     Active Substance: CETIRIZINE HYDROCHLORIDE

REACTIONS (5)
  - Chest discomfort [None]
  - Therapy change [None]
  - Influenza like illness [None]
  - Nasopharyngitis [None]
  - Dysphonia [None]

NARRATIVE: CASE EVENT DATE: 20161117
